FAERS Safety Report 19000753 (Version 5)
Quarter: 2021Q2

REPORT INFORMATION
  Report Type: Spontaneous
  Country: GB (occurrence: GB)
  Receive Date: 20210311
  Receipt Date: 20210510
  Transmission Date: 20210717
  Serious: Yes (Other)
  Sender: FDA-Public Use
  Company Number: GB-BIOMARINAP-GB-2021-134700

PATIENT
  Age: 49 Year
  Sex: Female

DRUGS (1)
  1. VIMIZIM [Suspect]
     Active Substance: ELOSULFASE ALFA
     Indication: MUCOPOLYSACCHARIDOSIS IV
     Dosage: 75 MILLIGRAM, QW
     Route: 042

REACTIONS (9)
  - Catheter site pain [Not Recovered/Not Resolved]
  - Wound [Unknown]
  - Patient-device incompatibility [Unknown]
  - Catheter site erythema [Unknown]
  - Catheter site bruise [Not Recovered/Not Resolved]
  - Pain in extremity [Unknown]
  - Limb injury [Unknown]
  - Catheter site infection [Unknown]
  - Fall [Unknown]

NARRATIVE: CASE EVENT DATE: 20210208
